FAERS Safety Report 4298811-9 (Version None)
Quarter: 2004Q1

REPORT INFORMATION
  Report Type: 
  Country: None (occurrence: None)
  Receive Date: 20040126
  Receipt Date: 20030912
  Transmission Date: 20041129
  Serious: No
  Sender: FDA-Public Use
  Company Number: USA030947075

PATIENT
  Age: 10 Year
  Sex: Male

DRUGS (3)
  1. STRATTERA [Suspect]
     Indication: ATTENTION DEFICIT/HYPERACTIVITY DISORDER
     Dosage: 25 MG
     Dates: start: 20030909
  2. CLARITIN [Concomitant]
  3. FLONASE [Concomitant]

REACTIONS (4)
  - FEELING HOT [None]
  - FLUSHING [None]
  - NAUSEA [None]
  - PHARYNGOLARYNGEAL PAIN [None]
